FAERS Safety Report 13007341 (Version 1)
Quarter: 2016Q4

REPORT INFORMATION
  Report Type: Spontaneous
  Country: GB (occurrence: GB)
  Receive Date: 20161207
  Receipt Date: 20161207
  Transmission Date: 20170207
  Serious: Yes (Life-Threatening)
  Sender: FDA-Public Use
  Company Number: GB-TEVA-717423ACC

PATIENT
  Age: 88 Year
  Sex: Female

DRUGS (10)
  1. WARFARIN [Suspect]
     Active Substance: WARFARIN
     Indication: PULMONARY EMBOLISM
     Dosage: 7MG FOR 1 DAY THEN 5MG MONDAY,WEDNESDAY AND FRIDAY AND THEN 4MG THE REST OF THE WEEK.
     Route: 048
     Dates: start: 20140805, end: 20161115
  2. WARFARIN [Suspect]
     Active Substance: WARFARIN
     Indication: PULMONARY EMBOLISM
     Dosage: 7MG FOR 1 DAY THEN 5MG MONDAY,WEDNESDAY AND FRIDAY AND THEN 4MG THE REST OF THE WEEK.
     Route: 048
     Dates: start: 20140805, end: 20161115
  3. FOLIC ACID. [Concomitant]
     Active Substance: FOLIC ACID
  4. WARFARIN [Suspect]
     Active Substance: WARFARIN
     Indication: PULMONARY EMBOLISM
     Dosage: 7MG FOR 1 DAY THEN 5MG MONDAY,WEDNESDAY AND FRIDAY AND THEN 4MG THE REST OF THE WEEK.
     Route: 048
     Dates: start: 20140805, end: 20161115
  5. OMEPRAZOLE. [Concomitant]
     Active Substance: OMEPRAZOLE
  6. FERROUS FUMARATE [Concomitant]
     Active Substance: FERROUS FUMARATE
  7. COCODAMOL [Concomitant]
     Active Substance: ACETAMINOPHEN\CODEINE PHOSPHATE
  8. FLUCLOXACILLIN [Concomitant]
     Active Substance: FLUCLOXACILLIN
  9. FUROSEMIDE. [Concomitant]
     Active Substance: FUROSEMIDE
  10. GABAPENTIN. [Concomitant]
     Active Substance: GABAPENTIN

REACTIONS (3)
  - Loss of consciousness [Not Recovered/Not Resolved]
  - Unresponsive to stimuli [Not Recovered/Not Resolved]
  - Haemorrhage intracranial [Not Recovered/Not Resolved]

NARRATIVE: CASE EVENT DATE: 20140805
